FAERS Safety Report 10533479 (Version 2)
Quarter: 2015Q1

REPORT INFORMATION
  Report Type: Spontaneous
  Country: US (occurrence: US)
  Receive Date: 20141022
  Receipt Date: 20150319
  Transmission Date: 20150720
  Serious: Yes (Disabling, Other)
  Sender: FDA-Public Use
  Company Number: US-PAR PHARMACEUTICAL, INC-2014SCPR009444

PATIENT

DRUGS (1)
  1. BUPROPION HCL XL TABLETS [Suspect]
     Active Substance: BUPROPION HYDROCHLORIDE
     Indication: OBSESSIVE-COMPULSIVE DISORDER
     Dosage: UNK UNK, UNKNOWN
     Route: 065

REACTIONS (2)
  - Deafness [Recovered/Resolved]
  - Product use issue [Unknown]
